FAERS Safety Report 5255261-6 (Version None)
Quarter: 2007Q1

REPORT INFORMATION
  Report Type: 
  Country: None (occurrence: None)
  Receive Date: 20070228
  Receipt Date: 20070212
  Transmission Date: 20070707
  Serious: Yes (Life-Threatening, Hospitalization)
  Sender: FDA-Public Use
  Company Number: DSA_29460_2007

PATIENT
  Age: 13 Year
  Sex: Female

DRUGS (1)
  1. MONOTILDIEM [Suspect]
     Dosage: 14 TAB ONCE PO
     Route: 048
     Dates: start: 20070119, end: 20070119

REACTIONS (4)
  - ARRHYTHMIA [None]
  - ATRIAL FIBRILLATION [None]
  - BRADYCARDIA [None]
  - HYPOTENSION [None]
